FAERS Safety Report 24910362 (Version 1)
Quarter: 2025Q1

REPORT INFORMATION
  Report Type: Spontaneous
  Country: CN (occurrence: CN)
  Receive Date: 20250131
  Receipt Date: 20250131
  Transmission Date: 20250408
  Serious: Yes (Hospitalization)
  Sender: DR REDDYS
  Company Number: None

PATIENT
  Age: 54 Year
  Sex: Male
  Weight: 72.0 kg

DRUGS (1)
  1. OLANZAPINE [Suspect]
     Active Substance: OLANZAPINE
     Indication: Anxiety
     Dosage: 0.25 TABLET, QD
     Route: 048
     Dates: start: 20250123, end: 20250124

REACTIONS (3)
  - Heart rate decreased [Recovering/Resolving]
  - Dizziness [Recovering/Resolving]
  - Somnolence [Recovering/Resolving]

NARRATIVE: CASE EVENT DATE: 20250124
